FAERS Safety Report 5044371-4 (Version None)
Quarter: 2006Q2

REPORT INFORMATION
  Report Type: 
  Country: None (occurrence: None)
  Receive Date: 20060629
  Receipt Date: 20060522
  Transmission Date: 20061013
  Serious: Yes (Other)
  Sender: FDA-Public Use
  Company Number: CHPA2006US05138

PATIENT
  Age: 60 Year
  Sex: Male
  Weight: 72.6 kg

DRUGS (11)
  1. PRIVATE LABEL (NCH) (NICOTINE) TRANS-THERAPEUTIC-SYSTEM [Suspect]
     Indication: SMOKING CESSATION THERAPY
     Dosage: 21 MG, QD, TRANSDERMAL
     Route: 062
     Dates: start: 20060508, end: 20060514
  2. KROGER PLP (NCH) (NICOTINE) TRANS-THERAPEUTIC-SYSTEM [Suspect]
     Indication: SMOKING CESSATION THERAPY
     Dosage: 21 MG, QD, TRANSDERMAL
     Route: 062
     Dates: start: 20060515, end: 20060522
  3. SINGULAIR [Concomitant]
  4. CARDIOVASCULAR DRUGS (NO INGREDIENTS/SUBSTANCES) [Concomitant]
  5. ALBUTEROL [Concomitant]
  6. PREDNISONE TAB [Concomitant]
  7. THEOPHYLLINE [Concomitant]
  8. CELEXA [Concomitant]
  9. ALUPENT [Concomitant]
  10. RANITIDINE [Concomitant]
  11. CALTRATE (CALCIUM CARBONATE) [Concomitant]

REACTIONS (6)
  - ASTHENIA [None]
  - HYPOAESTHESIA [None]
  - MENTAL DISORDER [None]
  - PARAESTHESIA [None]
  - VISION BLURRED [None]
  - VISUAL DISTURBANCE [None]
